FAERS Safety Report 4883999-9 (Version None)
Quarter: 2006Q1

REPORT INFORMATION
  Report Type: 
  Country: None (occurrence: None)
  Receive Date: 20060111
  Receipt Date: 20051227
  Transmission Date: 20060701
  Serious: Yes (Hospitalization)
  Sender: FDA-Public Use
  Company Number: 2005-02665

PATIENT
  Age: 78 Year
  Sex: Female

DRUGS (1)
  1. IMMUCYST [Suspect]
     Indication: CARCINOMA IN SITU OF BLADDER
     Dosage: (81.0 MG)   I.VES., BLADDER
     Route: 043
     Dates: start: 20051107, end: 20051107

REACTIONS (6)
  - DYSURIA [None]
  - INFLAMMATION [None]
  - PROTEIN URINE PRESENT [None]
  - PYURIA [None]
  - THERAPY NON-RESPONDER [None]
  - WHITE BLOOD CELLS URINE POSITIVE [None]
